FAERS Safety Report 12682650 (Version 5)
Quarter: 2017Q3

REPORT INFORMATION
  Report Type: Spontaneous
  Country: US (occurrence: US)
  Receive Date: 20160825
  Receipt Date: 20170731
  Transmission Date: 20171127
  Serious: No
  Sender: FDA-Public Use
  Company Number: US-STRIDES ARCOLAB LIMITED-2016SP001867

PATIENT

DRUGS (8)
  1. ACARBOSE. [Suspect]
     Active Substance: ACARBOSE
     Dosage: 50 MG, BEFORE EACH FEEDING.
  2. VERAPAMIL [Suspect]
     Active Substance: VERAPAMIL HYDROCHLORIDE
     Indication: HYPERINSULINAEMIC HYPOGLYCAEMIA
     Dosage: 120 MG, QD
     Route: 065
  3. ACARBOSE. [Suspect]
     Active Substance: ACARBOSE
     Dosage: 75 MG, BEFORE EACH FEEDING
  4. MULTI VITAMIN [Concomitant]
     Active Substance: VITAMINS
     Indication: PRODUCT USED FOR UNKNOWN INDICATION
     Dosage: UNK
  5. ACARBOSE. [Suspect]
     Active Substance: ACARBOSE
     Indication: HYPERINSULINAEMIC HYPOGLYCAEMIA
     Dosage: 25 MG, BEFORE EACH OF HER SIX MEALS PER DAY
     Route: 065
  6. NIFEDIPINE. [Suspect]
     Active Substance: NIFEDIPINE
     Indication: HYPERINSULINAEMIC HYPOGLYCAEMIA
     Dosage: 10 MG, BID
     Route: 065
  7. NIFEDIPINE. [Suspect]
     Active Substance: NIFEDIPINE
     Dosage: 20 MG, BID
  8. TRUTOL GLUCOSE TOLERANCE TEST [Concomitant]
     Indication: PRODUCT USED FOR UNKNOWN INDICATION
     Dosage: 75 G, UNK

REACTIONS (3)
  - Off label use [Unknown]
  - Oedema peripheral [Unknown]
  - Weight increased [Unknown]
